FAERS Safety Report 18096731 (Version 1)
Quarter: 2020Q3

REPORT INFORMATION
  Report Type: Spontaneous
  Country: US (occurrence: US)
  Receive Date: 20200730
  Receipt Date: 20200730
  Transmission Date: 20201103
  Serious: Yes (Hospitalization, Other)
  Sender: FDA-Public Use
  Company Number: US-PURDUE-USA-2020-0160084

PATIENT
  Sex: Male

DRUGS (6)
  1. MIRALAX [Concomitant]
     Active Substance: POLYETHYLENE GLYCOL 3350
     Indication: PRODUCT USED FOR UNKNOWN INDICATION
     Dosage: 17 G, DAILY
     Route: 048
  2. PANTOPRAZOLE [Concomitant]
     Active Substance: PANTOPRAZOLE
     Indication: PRODUCT USED FOR UNKNOWN INDICATION
     Dosage: 40 MG, BID
     Route: 048
  3. GABAPENTIN. [Concomitant]
     Active Substance: GABAPENTIN
     Indication: PRODUCT USED FOR UNKNOWN INDICATION
     Dosage: 300 MG, BID
     Route: 048
  4. DICLOFENAC SODIUM. [Concomitant]
     Active Substance: DICLOFENAC SODIUM
     Indication: PRODUCT USED FOR UNKNOWN INDICATION
     Route: 061
  5. HYSINGLA ER [Suspect]
     Active Substance: HYDROCODONE BITARTRATE
     Indication: PAIN
     Dosage: 60 MG, DAILY
     Route: 048
  6. TRAVATAN Z [Concomitant]
     Active Substance: TRAVOPROST
     Indication: PRODUCT USED FOR UNKNOWN INDICATION
     Dosage: 0.004 %, DAILY
     Route: 065

REACTIONS (14)
  - Abdominal pain [Unknown]
  - Pancreatic disorder [Unknown]
  - Weight decreased [Unknown]
  - Impaired gastric emptying [Unknown]
  - Constipation [Unknown]
  - Gastrointestinal disorder [Unknown]
  - Oesophagitis [Unknown]
  - Alpha-1 antitrypsin deficiency [Unknown]
  - Gastrooesophageal reflux disease [Unknown]
  - Lactose intolerance [Unknown]
  - Liver function test increased [Unknown]
  - Cholecystectomy [Unknown]
  - Dyspepsia [Unknown]
  - Feeding disorder [Unknown]
